FAERS Safety Report 9812563 (Version 2)
Quarter: 2014Q1

REPORT INFORMATION
  Report Type: Report from Study
  Country: FR (occurrence: FR)
  Receive Date: 20140113
  Receipt Date: 20140121
  Transmission Date: 20141002
  Serious: Yes (Hospitalization)
  Sender: FDA-Public Use
  Company Number: FR-ROCHE-1330161

PATIENT
  Age: 54 Year
  Sex: Male
  Weight: 63 kg

DRUGS (9)
  1. OBINUTUZUMAB [Suspect]
     Indication: DIFFUSE LARGE B-CELL LYMPHOMA
     Dosage: ON 05/DEC/2013, LAST DOSE PRIOR TO SAE.
     Route: 065
     Dates: start: 20130829
  2. DOXORUBICIN [Concomitant]
     Route: 065
     Dates: start: 20130824, end: 20131010
  3. DOXORUBICIN [Concomitant]
     Route: 065
     Dates: start: 20131024, end: 20131205
  4. VINCRISTINE [Concomitant]
     Route: 065
     Dates: start: 20130824, end: 20131010
  5. VINCRISTINE [Concomitant]
     Route: 065
     Dates: start: 20131024, end: 20131205
  6. PREDNISONE [Concomitant]
     Route: 065
     Dates: start: 20130824, end: 20131010
  7. PREDNISONE [Concomitant]
     Route: 065
     Dates: start: 20131024, end: 20131205
  8. CYCLOPHOSPHAMIDE [Concomitant]
     Route: 065
     Dates: start: 20130824, end: 20131010
  9. CYCLOPHOSPHAMIDE [Concomitant]
     Route: 065
     Dates: start: 20131024, end: 20131205

REACTIONS (1)
  - Cellulitis [Recovered/Resolved]
